FAERS Safety Report 18785747 (Version 2)
Quarter: 2021Q1

REPORT INFORMATION
  Report Type: Spontaneous
  Country: US (occurrence: US)
  Receive Date: 20210125
  Receipt Date: 20210205
  Transmission Date: 20210419
  Serious: No
  Sender: FDA-Public Use
  Company Number: US-SUNOVION-2021SUN000107

PATIENT
  Sex: Female

DRUGS (1)
  1. APTIOM [Suspect]
     Active Substance: ESLICARBAZEPINE ACETATE
     Indication: EPILEPSY
     Dosage: 800 MG
     Route: 048
     Dates: start: 202003

REACTIONS (5)
  - Mood swings [Unknown]
  - Insomnia [Unknown]
  - Dizziness [Recovered/Resolved]
  - Nausea [Unknown]
  - Headache [Unknown]
